FAERS Safety Report 12608506 (Version 1)
Quarter: 2016Q3

REPORT INFORMATION
  Report Type: Spontaneous
  Country: FR (occurrence: FR)
  Receive Date: 20160729
  Receipt Date: 20160729
  Transmission Date: 20161109
  Serious: Yes (Disabling)
  Sender: FDA-Public Use
  Company Number: FR-ROCHE-1748192

PATIENT
  Age: 43 Year
  Sex: Male
  Weight: 86 kg

DRUGS (2)
  1. COTELLIC [Suspect]
     Active Substance: COBIMETINIB
     Indication: MALIGNANT MELANOMA
     Route: 048
     Dates: start: 20160404, end: 20160425
  2. ZELBORAF [Suspect]
     Active Substance: VEMURAFENIB
     Indication: MALIGNANT MELANOMA
     Route: 048
     Dates: start: 20160404

REACTIONS (5)
  - Cardiomyopathy [Not Recovered/Not Resolved]
  - Diarrhoea [Recovered/Resolved]
  - Periorbital oedema [Recovering/Resolving]
  - Dermatitis acneiform [Recovering/Resolving]
  - Face oedema [Recovered/Resolved]

NARRATIVE: CASE EVENT DATE: 20160405
